FAERS Safety Report 7744873-3 (Version None)
Quarter: 2011Q3

REPORT INFORMATION
  Report Type: 
  Country: None (occurrence: None)
  Receive Date: 20110912
  Receipt Date: 20110907
  Transmission Date: 20111222
  Serious: Yes (Death, Other)
  Sender: FDA-Public Use
  Company Number: JP-ABBOTT-11P-087-0853344-00

PATIENT
  Age: 68 Year
  Sex: Male
  Weight: 39 kg

DRUGS (10)
  1. ITRACONAZOLE [Interacting]
     Indication: PRODUCT USED FOR UNKNOWN INDICATION
  2. RIFAMPICIN [Interacting]
     Indication: ATYPICAL MYCOBACTERIAL INFECTION
  3. RIFAMPICIN [Interacting]
     Indication: MYCOBACTERIUM AVIUM COMPLEX INFECTION
  4. CLARITHROMYCIN [Interacting]
     Indication: MYCOBACTERIUM AVIUM COMPLEX INFECTION
  5. STREPTOMICIN [Concomitant]
     Indication: ATYPICAL MYCOBACTERIAL INFECTION
  6. STREPTOMICIN [Concomitant]
     Indication: MYCOBACTERIUM AVIUM COMPLEX INFECTION
  7. CLARITHROMYCIN [Suspect]
     Indication: ATYPICAL MYCOBACTERIAL INFECTION
  8. ISONIAZID [Concomitant]
     Indication: ATYPICAL MYCOBACTERIAL INFECTION
  9. MICAFUNGIN [Concomitant]
     Indication: BRONCHOPULMONARY ASPERGILLOSIS
  10. ISONIAZID [Concomitant]
     Indication: MYCOBACTERIUM AVIUM COMPLEX INFECTION

REACTIONS (7)
  - WEIGHT DECREASED [None]
  - DRUG INTERACTION [None]
  - RESPIRATORY FAILURE [None]
  - DYSPNOEA [None]
  - LABORATORY TEST ABNORMAL [None]
  - PULMONARY CAVITATION [None]
  - LUNG INFILTRATION [None]
